FAERS Safety Report 7302501-5 (Version None)
Quarter: 2011Q1

REPORT INFORMATION
  Report Type: 
  Country: None (occurrence: None)
  Receive Date: 20110218
  Receipt Date: 20110209
  Transmission Date: 20110831
  Serious: No
  Sender: FDA-Public Use
  Company Number: US-B.I. PHARMACEUTICALS,INC./RIDGEFIELD-2011-BP-02319BP

PATIENT
  Sex: Female
  Weight: 84 kg

DRUGS (3)
  1. MOBIC [Suspect]
     Dosage: 7.5 MG
     Route: 048
     Dates: start: 20110101
  2. MOBIC [Suspect]
     Indication: ARTHRITIS
     Dosage: 15 MG
     Route: 048
     Dates: end: 20101227
  3. REBIF [Suspect]
     Indication: MULTIPLE SCLEROSIS
     Dosage: 18.8571 MCG
     Route: 058
     Dates: start: 20100803

REACTIONS (3)
  - INFLUENZA LIKE ILLNESS [None]
  - BLOOD CREATINE INCREASED [None]
  - INJECTION SITE PAIN [None]
